FAERS Safety Report 9121485 (Version 1)
Quarter: 2013Q1

REPORT INFORMATION
  Report Type: Spontaneous
  Country: US (occurrence: US)
  Receive Date: 20130102
  Receipt Date: 20130102
  Transmission Date: 20140127
  Serious: Yes (Hospitalization, Other)
  Sender: FDA-Public Use
  Company Number: US-RB-047893-12

PATIENT
  Age: 52 Year
  Sex: Female

DRUGS (6)
  1. MUCINEX FAST-MAX SEVERE CONGESTION AND COUGH [Suspect]
     Indication: COUGH
     Dosage: PATIENT TOOK AN UNKNOWN DOSE EVERY 4 HOURS ON 14/DEC/2012 TO 15/DEC/2012
     Route: 048
     Dates: start: 20121214
  2. MUCINEX FAST-MAX SEVERE CONGESTION AND COUGH [Suspect]
  3. MUCINEX FAST-MAX SEVERE CONGESTION AND COUGH [Suspect]
  4. SINGULAIR [Concomitant]
     Indication: PRODUCT USED FOR UNKNOWN INDICATION
  5. ADVAIR [Concomitant]
     Indication: PRODUCT USED FOR UNKNOWN INDICATION
  6. ALBUTEROL [Concomitant]
     Indication: PRODUCT USED FOR UNKNOWN INDICATION
     Dosage: EVERYDAY

REACTIONS (8)
  - Asthma [Unknown]
  - Chest pain [Unknown]
  - Dyspepsia [Unknown]
  - Wheezing [Unknown]
  - Dyspnoea [Unknown]
  - Pyrexia [Unknown]
  - Chills [Unknown]
  - Drug ineffective [Not Recovered/Not Resolved]
